FAERS Safety Report 7207464-9 (Version None)
Quarter: 2010Q4

REPORT INFORMATION
  Report Type: 
  Country: None (occurrence: None)
  Receive Date: 20101220
  Receipt Date: 20101210
  Transmission Date: 20110411
  Serious: Yes (Other)
  Sender: FDA-Public Use
  Company Number: 2010SP060201

PATIENT
  Age: 70 Year
  Sex: Male

DRUGS (1)
  1. DESLORATADINE [Suspect]
     Indication: PRODUCT USED FOR UNKNOWN INDICATION
     Dosage: 5 MG;QD;
     Dates: start: 20101001

REACTIONS (3)
  - BRAIN NEOPLASM [None]
  - MEMORY IMPAIRMENT [None]
  - SOMNOLENCE [None]
